FAERS Safety Report 13276415 (Version 1)
Quarter: 2017Q1

REPORT INFORMATION
  Report Type: Spontaneous
  Country: US (occurrence: US)
  Receive Date: 20170227
  Receipt Date: 20170227
  Transmission Date: 20170428
  Serious: Yes (Hospitalization)
  Sender: FDA-Public Use
  Company Number: None

PATIENT
  Age: 50 Year
  Sex: Female
  Weight: 90.5 kg

DRUGS (1)
  1. TERBINAFINE. [Suspect]
     Active Substance: TERBINAFINE
     Dosage: 1 TAB EVERY DAY PO
     Route: 048
     Dates: start: 20160614, end: 20160801

REACTIONS (1)
  - Colitis [None]

NARRATIVE: CASE EVENT DATE: 20161027
